FAERS Safety Report 4791282-5 (Version None)
Quarter: 2005Q4

REPORT INFORMATION
  Report Type: 
  Country: None (occurrence: None)
  Receive Date: 20051007
  Receipt Date: 20050915
  Transmission Date: 20060501
  Serious: Yes (Hospitalization)
  Sender: FDA-Public Use
  Company Number: 2005UW13841

PATIENT
  Age: 54 Year
  Sex: Female
  Weight: 79 kg

DRUGS (8)
  1. CRESTOR [Suspect]
     Indication: BLOOD CHOLESTEROL INCREASED
     Route: 048
     Dates: start: 20031201, end: 20050808
  2. FOSAMAX [Concomitant]
     Route: 048
     Dates: start: 20050101
  3. ASPIRIN [Concomitant]
     Route: 048
     Dates: start: 20050101
  4. OSCAL [Concomitant]
     Route: 048
     Dates: start: 20050101
  5. VITAMIN D [Concomitant]
     Route: 048
     Dates: start: 20050101
  6. VENTOLIN [Concomitant]
     Dates: start: 20050101
  7. XANAX [Concomitant]
     Route: 048
     Dates: start: 20050801
  8. UNISOM [Concomitant]
     Route: 048
     Dates: start: 20050801

REACTIONS (2)
  - INTERSTITIAL LUNG DISEASE [None]
  - LEUKOCYTOSIS [None]
